FAERS Safety Report 26053366 (Version 1)
Quarter: 2025Q4

REPORT INFORMATION
  Report Type: Spontaneous
  Country: EU (occurrence: EU)
  Receive Date: 20251117
  Receipt Date: 20251117
  Transmission Date: 20260117
  Serious: Yes (Hospitalization)
  Sender: BAYER HEALTHCARE PHARMACEUTICALS INC.
  Company Number: None

PATIENT
  Age: 30 Year
  Sex: Female
  Weight: 60 kg

DRUGS (7)
  1. CIPROFLOXACIN [Suspect]
     Active Substance: CIPROFLOXACIN
     Indication: Sepsis
     Route: 048
     Dates: start: 20251003, end: 20251005
  2. ADCETRIS [Suspect]
     Active Substance: BRENTUXIMAB VEDOTIN
     Indication: Hodgkin^s disease
     Dosage: 115 MG, QD
     Route: 042
     Dates: start: 20250923, end: 20250923
  3. DEXAMETHASONE [Suspect]
     Active Substance: DEXAMETHASONE
     Indication: Hodgkin^s disease
     Route: 042
     Dates: start: 20250923, end: 20250926
  4. CYTARABINE [Suspect]
     Active Substance: CYTARABINE
     Indication: Hodgkin^s disease
     Route: 042
     Dates: start: 20250924, end: 20250925
  5. CARBOPLATIN [Suspect]
     Active Substance: CARBOPLATIN
     Indication: Hodgkin^s disease
     Route: 042
     Dates: start: 20250924, end: 20250926
  6. FILGRASTIM [Suspect]
     Active Substance: FILGRASTIM
     Indication: Chemotherapy side effect prophylaxis
     Route: 042
     Dates: start: 20250929, end: 20251003
  7. AMOXICILLIN [Suspect]
     Active Substance: AMOXICILLIN
     Indication: Sepsis
     Route: 048
     Dates: start: 20251003, end: 20251005

REACTIONS (2)
  - Hepatic cytolysis [Recovering/Resolving]
  - Rash scarlatiniform [Recovering/Resolving]

NARRATIVE: CASE EVENT DATE: 20251004
